FAERS Safety Report 4735474-X (Version None)
Quarter: 2005Q3

REPORT INFORMATION
  Report Type: 
  Country: None (occurrence: None)
  Receive Date: 20050805
  Receipt Date: 20050726
  Transmission Date: 20060218
  Serious: Yes (Hospitalization)
  Sender: FDA-Public Use
  Company Number: 2005AP04072

PATIENT
  Age: 21220 Day
  Sex: Male

DRUGS (2)
  1. PROPOFOL [Suspect]
     Indication: LIFE SUPPORT
     Dosage: 10-18 MLS AN HOUR
     Route: 042
  2. PROPOFOL [Suspect]
     Indication: SEDATION
     Dosage: 10-18 MLS AN HOUR
     Route: 042

REACTIONS (7)
  - ACCIDENTAL OVERDOSE [None]
  - ALANINE AMINOTRANSFERASE ABNORMAL [None]
  - ASPARTATE AMINOTRANSFERASE ABNORMAL [None]
  - BLOOD ALKALINE PHOSPHATASE ABNORMAL [None]
  - CHROMATURIA [None]
  - INCORRECT DRUG ADMINISTRATION RATE [None]
  - LIVER FUNCTION TEST ABNORMAL [None]
